FAERS Safety Report 10254733 (Version 1)
Quarter: 2014Q2

REPORT INFORMATION
  Report Type: Spontaneous
  Country: US (occurrence: US)
  Receive Date: 20140624
  Receipt Date: 20140624
  Transmission Date: 20141212
  Serious: No
  Sender: FDA-Public Use
  Company Number: US-009507513-1406USA005954

PATIENT
  Age: 51 Year
  Sex: Female

DRUGS (1)
  1. METHYLPREDNISOLONE SODIUM SUCCINATE [Suspect]
     Indication: ASTHMA
     Dosage: 80MG

REACTIONS (3)
  - Herpes simplex [Recovering/Resolving]
  - Infusion site pruritus [Recovering/Resolving]
  - Infusion site rash [Recovering/Resolving]
